FAERS Safety Report 18664276 (Version 1)
Quarter: 2020Q4

REPORT INFORMATION
  Report Type: Spontaneous
  Country: None (occurrence: US)
  Receive Date: 20201225
  Receipt Date: 20201225
  Transmission Date: 20210114
  Serious: Yes (Hospitalization, Other)
  Sender: FDA-Public Use
  Company Number: US-SANOFI-AVENTIS-2011SA055348

PATIENT

DRUGS (2)
  1. DIPHENHYDRAMINE. [Suspect]
     Active Substance: DIPHENHYDRAMINE
     Indication: SUICIDE ATTEMPT
     Dosage: 50 MG,UNK (1.45 GRAMS)
     Route: 048
  2. ALCOHOL. [Concomitant]
     Active Substance: ALCOHOL
     Dosage: 100 ML,UNK
     Route: 065

REACTIONS (17)
  - Blood creatine phosphokinase increased [Unknown]
  - Pain in extremity [Recovering/Resolving]
  - Pulse absent [Recovered/Resolved]
  - Paraesthesia [Recovering/Resolving]
  - Hypoaesthesia [Recovering/Resolving]
  - Peripheral swelling [Recovering/Resolving]
  - Rhabdomyolysis [Unknown]
  - Intentional overdose [Unknown]
  - Pain [Unknown]
  - Compartment syndrome [Recovering/Resolving]
  - Hypokinesia [Recovered/Resolved]
  - Muscular weakness [Unknown]
  - Blood urea abnormal [Recovered/Resolved]
  - Skin discolouration [Recovering/Resolving]
  - Musculoskeletal disorder [Recovered/Resolved]
  - Renal failure [Recovered/Resolved]
  - Blood creatinine increased [Recovered/Resolved]
